FAERS Safety Report 25050240 (Version 1)
Quarter: 2025Q1

REPORT INFORMATION
  Report Type: Spontaneous
  Country: US (occurrence: None)
  Receive Date: 20250306
  Receipt Date: 20250306
  Transmission Date: 20250408
  Serious: No
  Sender: FDA-CTU
  Company Number: None

PATIENT
  Age: 47 Year
  Sex: Male

DRUGS (2)
  1. GLEEVEC [Suspect]
     Active Substance: IMATINIB MESYLATE
     Indication: Acute lymphocytic leukaemia
  2. ICLUSIG [Suspect]
     Active Substance: PONATINIB HYDROCHLORIDE

REACTIONS (3)
  - Neutropenia [None]
  - Respiratory disorder [None]
  - Off label use [None]

NARRATIVE: CASE EVENT DATE: 20250305
